FAERS Safety Report 10075290 (Version 3)
Quarter: 2014Q2

REPORT INFORMATION
  Report Type: Report from Study
  Country: HR (occurrence: HR)
  Receive Date: 20140414
  Receipt Date: 20140604
  Transmission Date: 20141212
  Serious: Yes (Hospitalization, Other)
  Sender: FDA-Public Use
  Company Number: HR-ASTELLAS-2014EU003931

PATIENT
  Age: 73 Year
  Sex: Male

DRUGS (26)
  1. TACROLIMUS [Suspect]
     Indication: RENAL TRANSPLANT
     Route: 065
     Dates: start: 20090630
  2. TACROLIMUS [Suspect]
     Route: 065
     Dates: start: 20130509
  3. TACROLIMUS [Suspect]
     Route: 065
     Dates: start: 20130509
  4. TACROLIMUS [Suspect]
     Route: 065
     Dates: start: 20130509
  5. TACROLIMUS [Suspect]
     Route: 065
     Dates: start: 20130509
  6. TACROLIMUS [Suspect]
     Route: 065
     Dates: start: 20130509
  7. MYCOPHENOLIC ACID [Suspect]
     Indication: IMMUNOSUPPRESSION
     Route: 065
     Dates: start: 20090627
  8. MYCOPHENOLIC ACID [Suspect]
     Route: 065
     Dates: start: 20090627
  9. MYCOPHENOLIC ACID [Suspect]
     Route: 065
     Dates: start: 20090627
  10. MYCOPHENOLIC ACID [Suspect]
     Route: 065
     Dates: start: 20090627
  11. MYCOPHENOLIC ACID [Suspect]
     Route: 065
     Dates: start: 20090627
  12. MYCOPHENOLIC ACID [Suspect]
     Route: 065
     Dates: start: 20090627
  13. MYCOPHENOLIC ACID [Suspect]
     Route: 065
     Dates: start: 20090627
  14. PANTOPRAZOLUM FARMACOM [Concomitant]
     Indication: PROPHYLAXIS
     Route: 048
     Dates: start: 20090629
  15. ROCALTROL [Concomitant]
     Indication: PROPHYLAXIS
     Dosage: 0.125 MG, ONCE DAILY
     Route: 048
     Dates: start: 20090714
  16. FURSEMID                           /00032601/ [Concomitant]
     Indication: HYPERTENSION
     Route: 048
     Dates: start: 20090627
  17. FURSEMID                           /00032601/ [Concomitant]
     Route: 048
     Dates: start: 20090627
  18. CONCOR COR [Concomitant]
     Indication: HYPERTENSION
     Route: 048
     Dates: start: 20090909
  19. LERCANIL [Concomitant]
     Indication: HYPERTENSION
     Route: 048
     Dates: start: 20131010
  20. MARTEFARIN [Concomitant]
     Indication: VENOUS THROMBOSIS
     Route: 048
     Dates: start: 20130930
  21. METROL                             /00012501/ [Concomitant]
     Indication: PRODUCT USED FOR UNKNOWN INDICATION
     Route: 065
     Dates: start: 20090627
  22. METROL                             /00012501/ [Concomitant]
     Route: 065
     Dates: start: 20090627
  23. METROL                             /00012501/ [Concomitant]
     Route: 065
     Dates: start: 20090627
  24. MTOR [Concomitant]
     Indication: PRODUCT USED FOR UNKNOWN INDICATION
     Dosage: 500 UNK, UNK
     Route: 065
     Dates: start: 20090627
  25. MTOR [Concomitant]
     Route: 065
     Dates: start: 20131216
  26. MTOR [Concomitant]
     Route: 065
     Dates: start: 20131216

REACTIONS (4)
  - Venous thrombosis [Recovered/Resolved]
  - Basal cell carcinoma [Recovered/Resolved]
  - Bile duct stone [Recovered/Resolved]
  - Jaundice cholestatic [Recovered/Resolved]
